FAERS Safety Report 5063241-9 (Version None)
Quarter: 2006Q3

REPORT INFORMATION
  Report Type: 
  Country: None (occurrence: None)
  Receive Date: 20060724
  Receipt Date: 20060713
  Transmission Date: 20061208
  Serious: Yes (Other)
  Sender: FDA-Public Use
  Company Number: 2006085194

PATIENT
  Age: 61 Year
  Sex: Female

DRUGS (6)
  1. LIPITOR [Suspect]
     Indication: BLOOD CHOLESTEROL INCREASED
     Dosage: (80 MG ), ORAL
     Route: 048
  2. ALL OTHER THERAPEUTIC PRODUCTS (ALL OTHER THERAPEUTIC PRODUCTS) [Suspect]
     Indication: BLOOD CHOLESTEROL INCREASED
     Dosage: ORAL
     Route: 048
     Dates: start: 20060101, end: 20060101
  3. HYDROCHLOROTHIAZIDE [Concomitant]
  4. NIFEDIPINE [Concomitant]
  5. LISINOPRIL [Concomitant]
  6. PLAVIX [Concomitant]

REACTIONS (5)
  - BLOOD POTASSIUM DECREASED [None]
  - DIZZINESS [None]
  - DRUG DISPENSING ERROR [None]
  - URINARY TRACT INFECTION [None]
  - WRONG DRUG ADMINISTERED [None]
